FAERS Safety Report 10009607 (Version 1)
Quarter: 2014Q1

REPORT INFORMATION
  Report Type: Spontaneous
  Country: US (occurrence: US)
  Receive Date: 20140312
  Receipt Date: 20140312
  Transmission Date: 20141002
  Serious: No
  Sender: FDA-Public Use
  Company Number: US-INCYTE CORPORATION-2012IN002174

PATIENT
  Sex: Female

DRUGS (7)
  1. JAKAFI [Suspect]
     Indication: MYELOFIBROSIS
     Dosage: 20 MG, BID
     Route: 048
  2. BONIVA [Concomitant]
  3. VITAMIN D3 [Concomitant]
  4. VITAMIN B1 [Concomitant]
  5. FOLIC ACID [Concomitant]
  6. DILANTIN [Concomitant]
  7. TRIBENZOR [Concomitant]
     Dosage: 5-12.5 MG

REACTIONS (2)
  - Neuropathy peripheral [Unknown]
  - Haemoglobin decreased [Unknown]
